FAERS Safety Report 20059323 (Version 1)
Quarter: 2021Q4

REPORT INFORMATION
  Report Type: Report from Study
  Country: FR (occurrence: FR)
  Receive Date: 20211111
  Receipt Date: 20211111
  Transmission Date: 20220303
  Serious: Yes (Hospitalization)
  Sender: FDA-Public Use
  Company Number: FR-SERVIER-S21012331

PATIENT

DRUGS (7)
  1. PEGASPARGASE [Suspect]
     Active Substance: PEGASPARGASE
     Indication: Acute lymphocytic leukaemia
     Dosage: 1450 IU, D15 AND D43
     Route: 042
     Dates: start: 20210818
  2. TN UNSPECIFIED [Concomitant]
     Indication: Acute lymphocytic leukaemia
     Dosage: 580 MG, D1 AND D29
     Route: 042
     Dates: start: 20210803, end: 20210831
  3. TN UNSPECIFIED [Concomitant]
     Indication: Acute lymphocytic leukaemia
     Dosage: 43.5 MG, D3 TO D6, D10 TO D13
     Route: 042
     Dates: start: 20210805, end: 20210808
  4. TN UNSPECIFIED [Concomitant]
     Dosage: 30 MG, D3 AND D31
     Route: 037
     Dates: start: 20210805, end: 20210903
  5. TN UNSPECIFIED [Concomitant]
     Indication: Acute lymphocytic leukaemia
     Dosage: 15 MG, D3 AND D31
     Route: 037
     Dates: start: 20210805, end: 20210903
  6. TN UNSPECIFIED [Concomitant]
     Indication: Acute lymphocytic leukaemia
     Dosage: 12 MG, D3 AND D31
     Route: 037
     Dates: start: 20210805, end: 20210903
  7. TN UNSPECIFIED [Concomitant]
     Indication: Acute lymphocytic leukaemia
     Dosage: 0.9 MG, D15 AND D22
     Route: 042
     Dates: start: 20210817, end: 20210824

REACTIONS (2)
  - Febrile bone marrow aplasia [Recovered/Resolved]
  - Clostridium difficile colitis [Recovered/Resolved]

NARRATIVE: CASE EVENT DATE: 20210918
